FAERS Safety Report 7564431-3 (Version None)
Quarter: 2011Q2

REPORT INFORMATION
  Report Type: 
  Country: None (occurrence: None)
  Receive Date: 20110622
  Receipt Date: 20110614
  Transmission Date: 20111010
  Serious: Yes (Hospitalization)
  Sender: FDA-Public Use
  Company Number: PHHY2011US52546

PATIENT
  Sex: Female
  Weight: 30 kg

DRUGS (10)
  1. ACETYLCYSTEINE [Concomitant]
  2. CREON [Concomitant]
  3. SOURCE CF [Concomitant]
  4. VITAMIN D [Concomitant]
  5. AZITHROMYCIN [Concomitant]
  6. PREDNISONE [Concomitant]
  7. ALBUTEROL SULFATE AUTOHALER [Concomitant]
  8. TOBI [Suspect]
     Dosage: 300 MG, BID
     Dates: start: 20100424
  9. MEPHYTON [Concomitant]
  10. MIRALAX [Concomitant]

REACTIONS (6)
  - BACTERIAL INFECTION [None]
  - NAUSEA [None]
  - WEIGHT DECREASED [None]
  - PANCREATITIS [None]
  - LUNG INFECTION [None]
  - ABDOMINAL PAIN UPPER [None]
